FAERS Safety Report 9972106 (Version 1)
Quarter: 2014Q1

REPORT INFORMATION
  Report Type: Spontaneous
  Country: FR (occurrence: None)
  Receive Date: 20140304
  Receipt Date: 20140304
  Transmission Date: 20141002
  Serious: Yes (Hospitalization)
  Sender: FDA-Public Use
  Company Number: FK201400705

PATIENT
  Age: 78 Year
  Sex: Male

DRUGS (8)
  1. IRINOTECAN [Suspect]
     Indication: COLON CANCER METASTATIC
     Route: 042
     Dates: start: 20120801, end: 20131218
  2. AVASTIN (BEVACIZUMAB) (BEVACIZUMAB) [Suspect]
     Indication: COLON CANCER METASTATIC
     Route: 042
     Dates: start: 20120801, end: 20131218
  3. FLUOROURACIL ACCORD [Suspect]
     Indication: COLON CANCER METASTATIC
     Route: 042
     Dates: start: 20120801, end: 20131218
  4. AMLODIPINE [Concomitant]
  5. GLIMEPIRIDE [Concomitant]
  6. PERMIXON (SERENOA REPENS EXTRACT) [Concomitant]
  7. UROREC (SILODOSIN) [Concomitant]
  8. EUCREAS [Concomitant]

REACTIONS (7)
  - Ejection fraction decreased [None]
  - Pulmonary arterial hypertension [None]
  - Oedema peripheral [None]
  - Ulcer [None]
  - Disease progression [None]
  - Ascites [None]
  - Pleural effusion [None]
